FAERS Safety Report 23421225 (Version 1)
Quarter: 2024Q1

REPORT INFORMATION
  Report Type: Report from Study
  Country: US (occurrence: None)
  Receive Date: 20240119
  Receipt Date: 20240119
  Transmission Date: 20240409
  Serious: Yes (Other)
  Sender: FDA-Public Use
  Company Number: 2023A284259

PATIENT
  Sex: Male

DRUGS (1)
  1. CALQUENCE [Suspect]
     Active Substance: ACALABRUTINIB
     Indication: Chronic lymphocytic leukaemia
     Route: 048
     Dates: start: 202209

REACTIONS (6)
  - Cataract [Unknown]
  - Limb discomfort [Unknown]
  - Renal disorder [Unknown]
  - Diabetes mellitus [Unknown]
  - Product dose omission issue [Unknown]
  - Intentional product use issue [Unknown]
